FAERS Safety Report 20406229 (Version 4)
Quarter: 2022Q1

REPORT INFORMATION
  Report Type: Spontaneous
  Country: US (occurrence: US)
  Receive Date: 20220131
  Receipt Date: 20220216
  Transmission Date: 20220423
  Serious: No
  Sender: FDA-Public Use
  Company Number: US-PFIZER INC-202101522915

PATIENT
  Age: 60 Year
  Sex: Female
  Weight: 52.154 kg

DRUGS (2)
  1. IBRANCE [Suspect]
     Active Substance: PALBOCICLIB
     Indication: Breast cancer
     Dosage: 100 MG, 1 DAILY FOR 21 DAYS
     Dates: start: 20211012
  2. IBRANCE [Suspect]
     Active Substance: PALBOCICLIB
     Dosage: 125 MG, CYCLIC (1 EVERY DAY 3 WEEKS ON AND 1 WEEK OFF)
     Dates: start: 20211012

REACTIONS (1)
  - Nausea [Unknown]
